FAERS Safety Report 4396140-6 (Version None)
Quarter: 2004Q3

REPORT INFORMATION
  Report Type: 
  Country: None (occurrence: None)
  Receive Date: 20040709
  Receipt Date: 20040624
  Transmission Date: 20050211
  Serious: Yes (Other)
  Sender: FDA-Public Use
  Company Number: A0515947A

PATIENT
  Age: 41 Year
  Sex: Male

DRUGS (1)
  1. NICORETTE [Suspect]
     Indication: TOBACCO ABUSE
     Dosage: 4 MG/ PER DAY/ TRANSBUCCAL
     Route: 002
     Dates: start: 19990101

REACTIONS (1)
  - DEPENDENCE [None]
